FAERS Safety Report 4933136-7 (Version None)
Quarter: 2006Q1

REPORT INFORMATION
  Report Type: 
  Country: None (occurrence: None)
  Receive Date: 20060105
  Receipt Date: 20050217
  Transmission Date: 20060701
  Serious: No
  Sender: FDA-Public Use
  Company Number: 05H-163-0291426-00

PATIENT
  Age: 7 Year
  Sex: Female

DRUGS (2)
  1. DEMEROL [Suspect]
     Indication: PREMEDICATION
     Dosage: TOTAL DOSE 46 MG, ONCE, INTRAVENOUS
     Route: 042
     Dates: start: 20050217, end: 20050217
  2. OXYGEN [Concomitant]

REACTIONS (1)
  - ANAPHYLACTIC REACTION [None]
